FAERS Safety Report 8505747-3 (Version None)
Quarter: 2012Q3

REPORT INFORMATION
  Report Type: 
  Country: None (occurrence: None)
  Receive Date: 20120712
  Receipt Date: 20120709
  Transmission Date: 20120928
  Serious: Yes (Hospitalization, Other)
  Sender: FDA-Public Use
  Company Number: PHEH2012US007967

PATIENT
  Sex: Female

DRUGS (24)
  1. LORAZEPAM [Concomitant]
     Indication: INSOMNIA
     Dosage: 1 MG, QHS
     Route: 048
  2. OXYCODONE HCL [Concomitant]
     Indication: PAIN
     Dosage: 5 MG, PRN
     Route: 048
  3. MENTAX [Concomitant]
     Indication: TINEA INFECTION
     Dosage: 1 %, PRN
     Route: 061
     Dates: start: 20101209
  4. MULTI-VITAMINS [Concomitant]
     Dosage: 1 DF, QD
  5. GILENYA [Suspect]
     Indication: MULTIPLE SCLEROSIS
     Dosage: 0.5 MG, QD
     Route: 048
     Dates: start: 20120409, end: 20120411
  6. ABILIFY [Concomitant]
     Dosage: UNK UKN, UNK
  7. BUMETANIDE [Concomitant]
     Indication: OEDEMA
     Dosage: 1 MG, PRN
     Route: 048
     Dates: start: 20110601
  8. BETAMETHASONE DIPROPIONATE [Concomitant]
     Indication: SEBORRHOEIC DERMATITIS
     Dosage: 0.05 %, UNK
     Dates: start: 20110118
  9. VITAMIN D [Concomitant]
     Dosage: 4000 IU, QD
     Dates: start: 20100903
  10. CYCLOBENZAPRINE [Concomitant]
     Indication: MUSCLE SPASMS
     Dosage: 10 MG, BID
     Route: 048
  11. NUVIGIL [Concomitant]
     Indication: SOMNOLENCE
     Dosage: 150 MG, QD
     Route: 048
     Dates: start: 20110316
  12. KETOCONAZOLE [Concomitant]
     Indication: SEBORRHOEIC DERMATITIS
     Dosage: 2 %, PRN
     Route: 061
     Dates: start: 20110311
  13. ASPIRIN [Concomitant]
     Dosage: 325 MG, QD
     Dates: start: 20081209
  14. COQ10 [Concomitant]
     Dosage: 100 MG, QD
  15. LABETALOL HCL [Concomitant]
     Indication: HYPERTENSION
     Dosage: 300 MG, BID
     Dates: end: 20120419
  16. POTASSIUM CHLORIDE [Concomitant]
     Dosage: 3 MG, QD
     Dates: start: 20100903
  17. PEPCID [Concomitant]
     Indication: GASTROOESOPHAGEAL REFLUX DISEASE
     Dosage: 20 MG, QD
     Dates: start: 20081209
  18. DERMA-SMOOTHE/FS [Concomitant]
     Dosage: 0.01 %, PRN
     Route: 061
  19. LEXAPRO [Concomitant]
     Indication: DEPRESSION
     Dosage: 30 MG, QD
     Route: 048
     Dates: start: 20111011
  20. VERAPAMIL [Concomitant]
     Indication: HYPERTENSION
     Dosage: 240 MG, BID
     Route: 048
  21. ISOSORBIDE MONONITRATE [Concomitant]
     Indication: ANGINA PECTORIS
     Dosage: 30 MG, QD
     Route: 048
  22. PRAVASTATIN [Concomitant]
     Indication: HYPERCHOLESTEROLAEMIA
     Dosage: 40 MG, QD
     Route: 048
  23. DIAZEPAM [Concomitant]
     Dosage: 5 MG, QD
     Route: 048
  24. CALTRATE 600 + VITAMIN D [Concomitant]
     Dosage: UNK UKN, UNK

REACTIONS (10)
  - ATRIOVENTRICULAR BLOCK FIRST DEGREE [None]
  - ELECTROCARDIOGRAM PR PROLONGATION [None]
  - MALAISE [None]
  - HEART RATE DECREASED [None]
  - PALPITATIONS [None]
  - ELECTROCARDIOGRAM T WAVE INVERSION [None]
  - DIZZINESS [None]
  - ELECTROCARDIOGRAM QT PROLONGED [None]
  - FEELING ABNORMAL [None]
  - DIARRHOEA [None]
